FAERS Safety Report 4969427-3 (Version None)
Quarter: 2006Q2

REPORT INFORMATION
  Report Type: 
  Country: None (occurrence: None)
  Receive Date: 20060406
  Receipt Date: 20060326
  Transmission Date: 20061013
  Serious: Yes (Hospitalization, Other)
  Sender: FDA-Public Use
  Company Number: 200512253BWH

PATIENT
  Age: 70 Year
  Sex: Male

DRUGS (11)
  1. LEVITRA [Suspect]
     Indication: ERECTILE DYSFUNCTION
     Dosage: SEE IMAGE
     Route: 048
     Dates: start: 20040101
  2. LEVITRA [Suspect]
     Indication: ERECTILE DYSFUNCTION
     Dosage: SEE IMAGE
     Route: 048
     Dates: start: 20051001
  3. PLAVIX [Concomitant]
  4. LOVASTATIN [Concomitant]
  5. LOPRESSOR [Concomitant]
  6. LOTENSIN [Concomitant]
  7. IMDUR [Concomitant]
  8. FLOMAX [Concomitant]
  9. ASPIRIN [Concomitant]
  10. VIAGRA [Concomitant]
  11. FOLPX [Concomitant]

REACTIONS (3)
  - ADRENAL DISORDER [None]
  - MYOCARDIAL INFARCTION [None]
  - TOTAL CHOLESTEROL/HDL RATIO DECREASED [None]
